FAERS Safety Report 14750586 (Version 2)
Quarter: 2018Q2

REPORT INFORMATION
  Report Type: Report from Study
  Country: IE (occurrence: IE)
  Receive Date: 20180412
  Receipt Date: 20180510
  Transmission Date: 20180711
  Serious: Yes (Hospitalization)
  Sender: FDA-Public Use
  Company Number: IE-AMGEN-IRLSL2018048284

PATIENT
  Age: 79 Year
  Sex: Male

DRUGS (8)
  1. MAXOLON [Concomitant]
     Active Substance: METOCLOPRAMIDE HYDROCHLORIDE
     Dosage: 10 MG, AS NECESSARY (PRN (AS REQUIRED))
     Route: 050
  2. CLEXANE [Concomitant]
     Active Substance: ENOXAPARIN SODIUM
     Dosage: 100 MG, BID
     Route: 050
  3. OMEPRAZOLE. [Concomitant]
     Active Substance: OMEPRAZOLE
     Dosage: 40 MG, BID
     Route: 050
  4. DEXAMETHASONE. [Concomitant]
     Active Substance: DEXAMETHASONE
     Dosage: 8 MG, QD
     Route: 050
  5. EURAX [Concomitant]
     Active Substance: CROTAMITON
     Dosage: UNK, BID (10 N/A)
     Route: 050
  6. CETRINE [Concomitant]
     Dosage: 10 MG, BID
     Route: 050
  7. NEULASTA [Suspect]
     Active Substance: PEGFILGRASTIM
     Indication: PRODUCT USED FOR UNKNOWN INDICATION
     Dosage: 6 MG, Q3WK (POST CHEMOTHERAPY 3 WEEKLY CYCLE)
     Route: 058
     Dates: end: 2018
  8. BISOP [Concomitant]
     Dosage: 2.5 MG, QD
     Route: 050

REACTIONS (2)
  - Unevaluable event [Not Recovered/Not Resolved]
  - Malaise [Unknown]

NARRATIVE: CASE EVENT DATE: 2018
